FAERS Safety Report 9686282 (Version 1)
Quarter: 2013Q4

REPORT INFORMATION
  Report Type: Spontaneous
  Country: US (occurrence: US)
  Receive Date: 20131113
  Receipt Date: 20131113
  Transmission Date: 20140711
  Serious: Yes (Other)
  Sender: FDA-Public Use
  Company Number: US-CUBIST PHARMACEUTICAL, INC.-2013CBST000495

PATIENT
  Sex: 0

DRUGS (3)
  1. CUBICIN [Suspect]
     Indication: POST PROCEDURAL INFECTION
     Dosage: 10 ML, UNK, UNK
     Route: 065
     Dates: start: 20130606
  2. CUBICIN [Suspect]
     Indication: OFF LABEL USE
  3. INVANZ [Concomitant]
     Indication: PRODUCT USED FOR UNKNOWN INDICATION
     Dosage: UNK, UNK, UNK
     Route: 042

REACTIONS (1)
  - Eosinophilic pneumonia [Unknown]
